FAERS Safety Report 10781350 (Version 1)
Quarter: 2015Q1

REPORT INFORMATION
  Report Type: Spontaneous
  Country: US (occurrence: None)
  Receive Date: 20150209
  Receipt Date: 20150209
  Transmission Date: 20150721
  Serious: Yes (Hospitalization)
  Sender: FDA-Public Use
  Company Number: None

PATIENT
  Sex: Male
  Weight: 34 kg

DRUGS (2)
  1. ETOPOSIDE (VP-16) [Suspect]
     Active Substance: ETOPOSIDE
  2. IFOSFAMIDE. [Suspect]
     Active Substance: IFOSFAMIDE

REACTIONS (8)
  - Wound [None]
  - Seizure [None]
  - Pulmonary oedema [None]
  - Clostridial infection [None]
  - Confusional state [None]
  - Brain herniation [None]
  - Disseminated intravascular coagulation [None]
  - Pupil fixed [None]
